FAERS Safety Report 9327906 (Version 1)
Quarter: 2013Q2

REPORT INFORMATION
  Report Type: Spontaneous
  Country: US (occurrence: US)
  Receive Date: 20130604
  Receipt Date: 20130604
  Transmission Date: 20140414
  Serious: No
  Sender: FDA-Public Use
  Company Number: US-SANOFI-AVENTIS-2012SA040745

PATIENT
  Age: 65 Year
  Sex: Female

DRUGS (6)
  1. LANTUS [Suspect]
     Indication: TYPE 2 DIABETES MELLITUS
     Dosage: DOSE:8 UNIT(S)
     Route: 058
     Dates: start: 201205
  2. SOLOSTAR [Suspect]
     Dates: start: 201205
  3. GLIMEPIRIDE [Concomitant]
     Indication: TYPE 2 DIABETES MELLITUS
     Route: 048
  4. HUMALOG [Concomitant]
     Indication: TYPE 2 DIABETES MELLITUS
  5. METFORMIN [Concomitant]
     Dates: end: 201205
  6. METFORMIN [Concomitant]
     Dates: start: 20120606

REACTIONS (2)
  - Hunger [Not Recovered/Not Resolved]
  - Blood glucose increased [Not Recovered/Not Resolved]
